FAERS Safety Report 7774596-6 (Version None)
Quarter: 2011Q3

REPORT INFORMATION
  Report Type: 
  Country: None (occurrence: None)
  Receive Date: 20110923
  Receipt Date: 20110914
  Transmission Date: 20111222
  Serious: Yes (Other)
  Sender: FDA-Public Use
  Company Number: AU-PFIZER INC-2011224430

PATIENT
  Age: 50 Year
  Sex: Female
  Weight: 71.5 kg

DRUGS (4)
  1. SYMBICORT [Concomitant]
  2. FOLIC ACID [Concomitant]
     Dosage: 500 UG, UNK
     Route: 048
  3. PANTOPRAZOLE [Suspect]
     Indication: GASTROOESOPHAGEAL REFLUX DISEASE
     Dosage: 40 MG, 2X/DAY
     Route: 048
     Dates: start: 20090420, end: 20110711
  4. HYDROXOCOBALAMIN [Concomitant]
     Dosage: 1 MG, UNK
     Route: 042

REACTIONS (2)
  - HYPOKALAEMIA [None]
  - HYPOMAGNESAEMIA [None]
